FAERS Safety Report 5281100-3 (Version None)
Quarter: 2007Q1

REPORT INFORMATION
  Report Type: 
  Country: None (occurrence: None)
  Receive Date: 20070321
  Receipt Date: 20070312
  Transmission Date: 20070707
  Serious: No
  Sender: FDA-Public Use
  Company Number: 2007-155725-NL

PATIENT
  Age: 41 Year
  Sex: Female

DRUGS (2)
  1. MENOTROPINS [Suspect]
     Indication: ASSISTED FERTILISATION
     Dosage: DF NI
  2. CLOMIPHENE CITRATE [Suspect]
     Indication: ASSISTED FERTILISATION
     Dosage: DF NI

REACTIONS (6)
  - CLEAR CELL ENDOMETRIAL CARCINOMA [None]
  - IATROGENIC INJURY [None]
  - NO THERAPEUTIC RESPONSE [None]
  - OBSTETRIC PROCEDURE COMPLICATION [None]
  - OVARIAN CANCER [None]
  - TUMOUR PERFORATION [None]
